FAERS Safety Report 12607813 (Version 1)
Quarter: 2016Q3

REPORT INFORMATION
  Report Type: Not Available
  Country: US (occurrence: US)
  Receive Date: 20160729
  Receipt Date: 20160729
  Transmission Date: 20161109
  Serious: No
  Sender: FDA-Public Use
  Company Number: US-ANIPHARMA-2016-US-003559

PATIENT
  Age: 67 Year
  Sex: Male
  Weight: 108.86 kg

DRUGS (2)
  1. METHAZOLAMIDE TABLET [Suspect]
     Active Substance: METHAZOLAMIDE
     Dosage: UNKNOWN DOSE TWICE DAILY
     Route: 048
     Dates: start: 20160513, end: 20160523
  2. OXYCONTIN [Concomitant]
     Active Substance: OXYCODONE HYDROCHLORIDE
     Dosage: UNKNOWN
     Route: 065

REACTIONS (3)
  - Joint swelling [None]
  - Oedema [Not Recovered/Not Resolved]
  - Arthralgia [Not Recovered/Not Resolved]

NARRATIVE: CASE EVENT DATE: 20160516
